FAERS Safety Report 14102116 (Version 6)
Quarter: 2017Q4

REPORT INFORMATION
  Report Type: Spontaneous
  Country: KR (occurrence: KR)
  Receive Date: 20171018
  Receipt Date: 20171220
  Transmission Date: 20180321
  Serious: Yes (Other)
  Sender: FDA-Public Use
  Company Number: KR-009507513-1710KOR001176

PATIENT
  Age: 73 Year
  Sex: Male
  Weight: 68.3 kg

DRUGS (16)
  1. NOXAFIL [Suspect]
     Active Substance: POSACONAZOLE
     Dosage: 300 MG, QD
     Route: 048
     Dates: start: 20170908
  2. DACOGEN [Concomitant]
     Active Substance: DECITABINE
     Indication: ACUTE MYELOID LEUKAEMIA
     Dosage: 35.2 MG, ONCE DAILY
     Route: 042
     Dates: start: 20170907, end: 20170911
  3. PENIRAMIN [Concomitant]
     Indication: PROPHYLAXIS
     Dosage: 1 ^AMPLE^, QD
     Route: 042
     Dates: start: 20170907, end: 20170907
  4. PENIRAMIN [Concomitant]
     Dosage: 1 ^AMPLE^, QD
     Route: 042
     Dates: start: 20170921, end: 20170923
  5. ALLOPURINOL. [Concomitant]
     Active Substance: ALLOPURINOL
     Indication: PROPHYLAXIS
     Dosage: 200 MG, QD
     Route: 048
     Dates: start: 20170906, end: 20170913
  6. PENIRAMIN [Concomitant]
     Dosage: 1 ^AMPLE^, QD
     Route: 042
     Dates: start: 20170926, end: 20170926
  7. PENIRAMIN [Concomitant]
     Dosage: 1 ^AMPLE^, QD
     Route: 042
     Dates: start: 20170913, end: 20170913
  8. NOXAFIL [Suspect]
     Active Substance: POSACONAZOLE
     Indication: ANTIFUNGAL PROPHYLAXIS
     Dosage: 300 MG, BID
     Route: 048
     Dates: start: 20170907, end: 20170907
  9. PENZAL (ACETAMINOPHEN (+) CAFFEINE (+) DEANOL TARTRATE (+) PROPYPHENAZ [Concomitant]
     Indication: FEBRILE NEUTROPENIA
     Dosage: 1300 MG, PRN (ON FEVER)
     Route: 048
     Dates: start: 20170907
  10. MAXIPIME [Concomitant]
     Active Substance: CEFEPIME HYDROCHLORIDE
     Indication: FEBRILE NEUTROPENIA
     Dosage: 2 G, TID
     Route: 042
     Dates: start: 20170907, end: 20171002
  11. NORVASC [Concomitant]
     Active Substance: AMLODIPINE BESYLATE
     Indication: HYPERTENSION
     Dosage: 5 MG, QD, ONCE DAILY
     Route: 048
     Dates: start: 2017, end: 20171004
  12. DACOGEN [Concomitant]
     Active Substance: DECITABINE
     Dosage: 36 MG, QD
     Route: 042
     Dates: start: 20171005, end: 20171009
  13. PENIRAMIN [Concomitant]
     Dosage: 1 ^AMPLE^, QD
     Route: 042
     Dates: start: 20171001, end: 20171003
  14. HYTRIN [Concomitant]
     Active Substance: TERAZOSIN HYDROCHLORIDE
     Indication: BENIGN PROSTATIC HYPERPLASIA
     Dosage: 2 MG, QD
     Route: 048
     Dates: start: 2017
  15. PENIRAMIN [Concomitant]
     Dosage: 1 ^AMPLE^, QD
     Route: 042
     Dates: start: 20170929, end: 20170929
  16. PENIRAMIN [Concomitant]
     Dosage: 1 ^AMPLE^, QD
     Route: 042
     Dates: start: 20170917, end: 20170917

REACTIONS (13)
  - Erythema nodosum [Not Recovered/Not Resolved]
  - Haemochromatosis [Not Recovered/Not Resolved]
  - Cellulitis [Not Recovered/Not Resolved]
  - Cheilitis [Recovered/Resolved]
  - Abdominal pain upper [Not Recovered/Not Resolved]
  - Haemoptysis [Recovered/Resolved]
  - Cough [Recovering/Resolving]
  - Epistaxis [Recovered/Resolved]
  - Fluid retention [Recovered/Resolved]
  - Oedema [Not Recovered/Not Resolved]
  - Dyshidrotic eczema [Not Recovered/Not Resolved]
  - Chest pain [Not Recovered/Not Resolved]
  - Dyspnoea [Not Recovered/Not Resolved]

NARRATIVE: CASE EVENT DATE: 20170908
